FAERS Safety Report 7513921-8 (Version None)
Quarter: 2011Q2

REPORT INFORMATION
  Report Type: 
  Country: None (occurrence: None)
  Receive Date: 20110531
  Receipt Date: 20110524
  Transmission Date: 20111010
  Serious: Yes (Hospitalization)
  Sender: FDA-Public Use
  Company Number: PHHO2011DE08394

PATIENT
  Age: 66 Year
  Sex: Male
  Weight: 83 kg

DRUGS (6)
  1. EXJADE [Suspect]
     Dosage: 500 MG, X3
     Dates: start: 20110123, end: 20110513
  2. LBH589 [Suspect]
     Indication: MYELODYSPLASTIC SYNDROME
     Dosage: 20 MG, MWF
     Route: 048
     Dates: start: 20110512, end: 20110513
  3. METFORMIN HCL [Concomitant]
  4. RAMIPRIL [Concomitant]
  5. METOPROLOL SUCCINATE [Concomitant]
  6. ASPIRIN [Concomitant]

REACTIONS (2)
  - RHABDOMYOLYSIS [None]
  - RENAL FAILURE [None]
